FAERS Safety Report 17200809 (Version 2)
Quarter: 2020Q1

REPORT INFORMATION
  Report Type: Report from Study
  Country: CA (occurrence: CA)
  Receive Date: 20191226
  Receipt Date: 20200210
  Transmission Date: 20200409
  Serious: Yes (Other)
  Sender: FDA-Public Use
  Company Number: CA-GLAXOSMITHKLINE-CA2019AMR217107

PATIENT
  Sex: Female

DRUGS (2)
  1. MEPOLIZUMAB [Suspect]
     Active Substance: MEPOLIZUMAB
     Indication: ASTHMA
     Dosage: 100 MG, Z (MONTHLY)
     Route: 042
     Dates: start: 20191003
  2. MEPOLIZUMAB [Suspect]
     Active Substance: MEPOLIZUMAB
     Dosage: 100 MG, Z(MONTHLY)
     Route: 042

REACTIONS (14)
  - Nasopharyngitis [Unknown]
  - Oxygen saturation decreased [Unknown]
  - Choking sensation [Unknown]
  - Cough [Unknown]
  - Wheezing [Unknown]
  - Nasal congestion [Unknown]
  - Rhinorrhoea [Unknown]
  - Sleep disorder due to a general medical condition [Unknown]
  - Loss of personal independence in daily activities [Unknown]
  - Chronic obstructive pulmonary disease [Unknown]
  - Dyspnoea [Unknown]
  - Malaise [Unknown]
  - Bronchial polyp [Unknown]
  - Asthma [Unknown]
